FAERS Safety Report 9415267 (Version 2)
Quarter: 2013Q3

REPORT INFORMATION
  Report Type: Spontaneous
  Country: US (occurrence: US)
  Receive Date: 20130723
  Receipt Date: 20130813
  Transmission Date: 20140515
  Serious: Yes (Disabling)
  Sender: FDA-Public Use
  Company Number: US-ASTRAZENECA-2013SE52534

PATIENT
  Age: 63 Year
  Sex: Female
  Weight: 85.7 kg

DRUGS (14)
  1. PROTONIX [Suspect]
     Indication: GASTROINTESTINAL DISORDER
     Route: 065
  2. PROTONIX [Suspect]
     Indication: GASTROOESOPHAGEAL REFLUX DISEASE
     Route: 065
  3. ZOLOFT [Concomitant]
     Indication: DEPRESSION
  4. ZOLOFT [Concomitant]
     Indication: ANXIETY
  5. PRILOSEC [Suspect]
     Indication: IRRITABLE BOWEL SYNDROME
     Route: 048
  6. PRILOSEC [Suspect]
     Indication: GASTROINTESTINAL DISORDER
     Route: 048
  7. PRILOSEC [Suspect]
     Indication: GASTROINTESTINAL DISORDER
     Route: 048
  8. PRILOSEC [Suspect]
     Indication: GASTROOESOPHAGEAL REFLUX DISEASE
     Route: 048
  9. PRILOSEC [Suspect]
     Indication: IRRITABLE BOWEL SYNDROME
     Route: 048
  10. PRILOSEC [Suspect]
     Indication: GASTROINTESTINAL DISORDER
     Route: 048
  11. PRILOSEC [Suspect]
     Indication: GASTROINTESTINAL DISORDER
     Route: 048
  12. PRILOSEC [Suspect]
     Indication: GASTROOESOPHAGEAL REFLUX DISEASE
     Route: 048
  13. PROTONIX [Suspect]
     Indication: IRRITABLE BOWEL SYNDROME
     Route: 065
  14. PROTONIX [Suspect]
     Indication: GASTROINTESTINAL DISORDER
     Route: 065

REACTIONS (14)
  - Foot fracture [Unknown]
  - Gastric mucosa erythema [Unknown]
  - Blood cholesterol abnormal [Unknown]
  - Anxiety [Unknown]
  - Cardiac disorder [Unknown]
  - Abdominal distension [Unknown]
  - Gastritis [Unknown]
  - Rhinorrhoea [Unknown]
  - Blood test abnormal [Unknown]
  - Muscle strain [Unknown]
  - Nasal discomfort [Unknown]
  - Myalgia [Unknown]
  - Depression [Unknown]
  - Abdominal pain upper [Unknown]
